FAERS Safety Report 8406637-7 (Version None)
Quarter: 2012Q2

REPORT INFORMATION
  Report Type: 
  Country: None (occurrence: None)
  Receive Date: 20120604
  Receipt Date: 20120521
  Transmission Date: 20120825
  Serious: Yes (Death, Other)
  Sender: FDA-Public Use
  Company Number: GB-PFIZER INC-2012120220

PATIENT

DRUGS (4)
  1. ACETAMINOPHEN [Suspect]
     Indication: ARTHRALGIA
     Dosage: UNK
     Route: 048
  2. PLACEBO [Suspect]
     Indication: ARTHRALGIA
     Dosage: UNK
     Route: 048
  3. ALL OTHER THERAPEUTIC PRODUCTS [Suspect]
     Indication: ARTHRALGIA
     Route: 048
  4. IBUPROFEN [Suspect]
     Indication: ARTHRALGIA
     Dosage: UNK
     Route: 048

REACTIONS (5)
  - HAEMOGLOBIN DECREASED [None]
  - ANGINA PECTORIS [None]
  - DIARRHOEA [None]
  - AORTIC ANEURYSM RUPTURE [None]
  - RENAL IMPAIRMENT [None]
